FAERS Safety Report 9931829 (Version 1)
Quarter: 2014Q1

REPORT INFORMATION
  Report Type: Spontaneous
  Country: JP (occurrence: None)
  Receive Date: 20140226
  Receipt Date: 20140226
  Transmission Date: 20141002
  Serious: Yes (Other)
  Sender: FDA-Public Use
  Company Number: SYM-2014-17756

PATIENT
  Sex: 0

DRUGS (1)
  1. FLUOROURACIL [Suspect]
     Indication: HEPATOCELLULAR CARCINOMA
     Route: 013

REACTIONS (1)
  - Hepatic failure [None]
